FAERS Safety Report 10816658 (Version 2)
Quarter: 2015Q1

REPORT INFORMATION
  Report Type: Spontaneous
  Country: US (occurrence: US)
  Receive Date: 20150218
  Receipt Date: 20150226
  Transmission Date: 20150721
  Serious: Yes (Hospitalization)
  Sender: FDA-Public Use
  Company Number: US-PFIZER INC-2015061951

PATIENT
  Sex: Female

DRUGS (1)
  1. AMLODIPINE BESILATE [Suspect]
     Active Substance: AMLODIPINE BESYLATE
     Indication: HYPERTENSION
     Dosage: 7.5 MG, 1X/DAY

REACTIONS (3)
  - Malaise [Unknown]
  - Gastritis viral [Recovering/Resolving]
  - Hypotension [Unknown]

NARRATIVE: CASE EVENT DATE: 201501
